FAERS Safety Report 9890432 (Version 1)
Quarter: 2014Q1

REPORT INFORMATION
  Report Type: Spontaneous
  Country: US (occurrence: None)
  Receive Date: 20140210
  Receipt Date: 20140210
  Transmission Date: 20141002
  Serious: Yes (Other)
  Sender: FDA-Public Use
  Company Number: None

PATIENT
  Sex: Male

DRUGS (2)
  1. ZYTIGA [Suspect]
     Indication: NEOPLASM MALIGNANT
     Route: 048
     Dates: start: 201303
  2. ZOMETA [Suspect]
     Indication: OSTEOPOROSIS

REACTIONS (2)
  - Headache [None]
  - No therapeutic response [None]
